FAERS Safety Report 4600299-2 (Version None)
Quarter: 2005Q1

REPORT INFORMATION
  Report Type: 
  Country: None (occurrence: None)
  Receive Date: 20050127
  Receipt Date: 20041103
  Transmission Date: 20050727
  Serious: No
  Sender: FDA-Public Use
  Company Number: USA041183120

PATIENT
  Age: 12 Year
  Sex: Male

DRUGS (3)
  1. STRATTERA [Suspect]
     Indication: ATTENTION DEFICIT/HYPERACTIVITY DISORDER
     Dosage: 40 MG/1 IN THE MORNING
     Dates: start: 20041001
  2. HUMALOG [Concomitant]
  3. LANTUS [Concomitant]

REACTIONS (1)
  - STOMACH DISCOMFORT [None]
